FAERS Safety Report 22226871 (Version 1)
Quarter: 2023Q2

REPORT INFORMATION
  Report Type: Spontaneous
  Country: JP (occurrence: JP)
  Receive Date: 20230419
  Receipt Date: 20230419
  Transmission Date: 20230721
  Serious: Yes (Other)
  Sender: FDA-Public Use
  Company Number: JP-BAXTER-2023BAX018546

PATIENT
  Age: 14 Year
  Sex: Male

DRUGS (24)
  1. MESNA [Suspect]
     Active Substance: MESNA
     Indication: Cystitis haemorrhagic
     Dosage: EVERY 12 HOURS FOR 5 DOSES, (DAYS 2 TO 4)
     Route: 065
  2. IFOSFAMIDE [Suspect]
     Active Substance: IFOSFAMIDE
     Indication: T-cell type acute leukaemia
     Dosage: 800 MG/M2,  AT 42, 48, AND 54 HOURS AFTER THE START OF THERAPY
     Route: 041
     Dates: start: 20230105, end: 20230107
  3. VINDESINE SULFATE [Suspect]
     Active Substance: VINDESINE SULFATE
     Indication: T-cell type acute leukaemia
     Dosage: 3 MG/M2, ALL-T19 CONSOLIDATION THERAPY HR2 REGIMEN
     Route: 041
     Dates: start: 20230104, end: 20230104
  4. VINDESINE SULFATE [Suspect]
     Active Substance: VINDESINE SULFATE
     Dosage: 3 MG/M2/DAY
     Route: 041
     Dates: start: 20230109, end: 20230109
  5. METHOTREXATE [Suspect]
     Active Substance: METHOTREXATE
     Indication: T-cell type acute leukaemia
     Dosage: 5 G/M2 (DAY 1, OVER 24 HOURS), ALL-T19 CONSOLIDATION THERAPY HR2 REGIMEN
     Route: 041
     Dates: start: 20230104, end: 20230104
  6. METHOTREXATE [Suspect]
     Active Substance: METHOTREXATE
     Dosage: UNK
     Route: 024
     Dates: start: 20230105, end: 20230105
  7. DAUNORUBICIN [Suspect]
     Active Substance: DAUNORUBICIN
     Indication: T-cell type acute leukaemia
     Dosage: 30 MG/M2, (DAY 5 [OVER 24 HOURS])
     Route: 041
     Dates: start: 20230108
  8. ASPARAGINASE [Suspect]
     Active Substance: ASPARAGINASE
     Indication: T-cell type acute leukaemia
     Dosage: 25,000 U/M2
     Route: 030
     Dates: start: 20230109, end: 20230109
  9. ASPARAGINASE [Suspect]
     Active Substance: ASPARAGINASE
     Dosage: 25,000 U/M2
     Route: 030
     Dates: start: 20230114, end: 20230114
  10. DEXAMETHASONE SODIUM PHOSPHATE [Suspect]
     Active Substance: DEXAMETHASONE SODIUM PHOSPHATE
     Indication: T-cell type acute leukaemia
     Dosage: 20 MG/M2 X 0.825 IN 3 DIVIDED DOSES DAILY (DAYS 1 TO 5), ALL-T19 CONSOLIDATION THERAPY HR2 REGIMEN
     Route: 065
     Dates: start: 20230104, end: 20230108
  11. LEUCOVORIN [Suspect]
     Active Substance: LEUCOVORIN
     Indication: T-cell type acute leukaemia
     Dosage: RESCUE MEDICINE, ALL-T19 CONSOLIDATION THERAPY HR2 REGIMEN
     Route: 065
     Dates: start: 20230104
  12. CYTARABINE [Concomitant]
     Active Substance: CYTARABINE
     Dosage: UNK
     Route: 065
     Dates: start: 20230105, end: 20230105
  13. PREDONINE [Concomitant]
     Active Substance: PREDNISOLONE
     Dosage: UNK
     Route: 065
     Dates: start: 20230105, end: 20230105
  14. ISOTONIC SODIUM CHLORIDE SOLUTION [Concomitant]
     Active Substance: SODIUM CHLORIDE
     Dosage: UNK
     Route: 024
     Dates: start: 20230105, end: 20230105
  15. FOSAPREPITANT [Concomitant]
     Active Substance: FOSAPREPITANT
     Route: 065
  16. GRANISETRON [Concomitant]
     Active Substance: GRANISETRON
     Route: 065
  17. DEXTROSE\SODIUM CHLORIDE\SODIUM LACTATE [Concomitant]
     Active Substance: DEXTROSE\SODIUM CHLORIDE\SODIUM LACTATE
     Dosage: INITIATION MEDIUM
     Route: 065
  18. MEYLON [Concomitant]
     Active Substance: SODIUM BICARBONATE
     Route: 065
  19. DIAMOX SEQUELS [Concomitant]
     Active Substance: ACETAZOLAMIDE
     Route: 065
  20. HYDROCORTONE [Concomitant]
     Active Substance: HYDROCORTISONE
     Route: 065
  21. NEO-MINOPHAGEN C [Concomitant]
     Active Substance: AMMONIUM GLYCYRRHIZATE
     Route: 065
  22. SULFAMETHOXAZOLE\TRIMETHOPRIM [Concomitant]
     Active Substance: SULFAMETHOXAZOLE\TRIMETHOPRIM
     Route: 065
  23. FLUCONAZOLE [Concomitant]
     Active Substance: FLUCONAZOLE
     Route: 065
  24. MAGNESIUM OXIDE [Concomitant]
     Active Substance: MAGNESIUM OXIDE
     Route: 065

REACTIONS (4)
  - Myelosuppression [Recovered/Resolved]
  - Neutrophil count decreased [Recovered/Resolved]
  - White blood cell count decreased [Recovered/Resolved]
  - Malaise [Recovered/Resolved]

NARRATIVE: CASE EVENT DATE: 20230111
